FAERS Safety Report 25622712 (Version 1)
Quarter: 2025Q3

REPORT INFORMATION
  Report Type: Spontaneous
  Country: CN (occurrence: CN)
  Receive Date: 20250730
  Receipt Date: 20250730
  Transmission Date: 20251021
  Serious: Yes (Hospitalization)
  Sender: ALEXION PHARMACEUTICALS
  Company Number: CN-ASTRAZENECA-202507CHN024266CN

PATIENT
  Age: 56 Year
  Sex: Male
  Weight: 70.9 kg

DRUGS (2)
  1. DAPAGLIFLOZIN [Suspect]
     Active Substance: DAPAGLIFLOZIN
     Indication: Diabetes mellitus
     Dosage: 10 MILLIGRAM, QD
     Dates: start: 20250625, end: 20250705
  2. FENOFIBRATE [Suspect]
     Active Substance: FENOFIBRATE
     Indication: Diabetes mellitus
     Dosage: 0.1 GRAM, QD
     Dates: start: 20250625, end: 20250705

REACTIONS (2)
  - Rash pruritic [Recovering/Resolving]
  - Swelling face [Unknown]

NARRATIVE: CASE EVENT DATE: 20250705
